FAERS Safety Report 5115295-9 (Version None)
Quarter: 2006Q3

REPORT INFORMATION
  Report Type: 
  Country: None (occurrence: None)
  Receive Date: 20060922
  Receipt Date: 20060913
  Transmission Date: 20061208
  Serious: Yes (Other)
  Sender: FDA-Public Use
  Company Number: 2006RR-03714

PATIENT
  Sex: Female
  Weight: 75 kg

DRUGS (9)
  1. DOXAZOSIN (DOXAZOSIN) [Suspect]
     Indication: HYPERTENSION
     Dosage: 4 MG, UNK; ORAL
     Route: 048
     Dates: start: 20060615
  2. ATORVASTATIN [Concomitant]
  3. CALCIUM CARBONATE [Concomitant]
  4. GAVISCON [Concomitant]
  5. GAVISCON [Concomitant]
  6. GLICLAZIDE FAMILY (GLICLAZIDE) TABLET [Concomitant]
  7. METFORMIN FAMILY (METFORMIN HYDROCHLORIDE) TABLET [Concomitant]
  8. RANITIDINE 300 MG TABLETS [Concomitant]
  9. DILTIAZEM HCL [Concomitant]

REACTIONS (1)
  - MEDICATION RESIDUE [None]
